FAERS Safety Report 4504610-2 (Version None)
Quarter: 2004Q4

REPORT INFORMATION
  Report Type: 
  Country: None (occurrence: None)
  Receive Date: 20041118
  Receipt Date: 20041101
  Transmission Date: 20050328
  Serious: Yes (Death)
  Sender: FDA-Public Use
  Company Number: US-GLAXOSMITHKLINE-B0351110A

PATIENT
  Age: 47 Year

DRUGS (4)
  1. PAROXETINE [Suspect]
     Route: 048
  2. ETHYLENE GLYCOL [Suspect]
     Route: 048
  3. METOPROLOL [Suspect]
     Route: 048
  4. UNSPECIFIED DRUGS [Suspect]
     Route: 048

REACTIONS (2)
  - CARDIO-RESPIRATORY ARREST [None]
  - COMPLETED SUICIDE [None]
